FAERS Safety Report 7882768-5 (Version None)
Quarter: 2011Q4

REPORT INFORMATION
  Report Type: 
  Country: None (occurrence: None)
  Receive Date: 20111101
  Receipt Date: 20110620
  Transmission Date: 20120403
  Serious: No
  Sender: FDA-Public Use
  Company Number: US-AMGEN-USASP2011031438

PATIENT
  Age: 49 Year
  Sex: Female
  Weight: 136.1 kg

DRUGS (17)
  1. ENBREL [Suspect]
     Indication: PRODUCT USED FOR UNKNOWN INDICATION
     Dosage: 50 MG, QWK
     Route: 058
  2. CENTRUM SILVER [Concomitant]
  3. ZYRTEC [Concomitant]
     Dosage: 10 MG, UNK
  4. FISH OIL [Concomitant]
  5. FERROUS SULFATE TAB [Concomitant]
  6. DIOVAN [Concomitant]
     Dosage: 80 MG, UNK
  7. SCOPOLAMINE [Concomitant]
     Dosage: 0.4 MG, UNK
  8. CINNAMON [Concomitant]
     Dosage: 500 MG, UNK
  9. TRIAMTERENE AND HYDROCHLOROTHIAZIDE [Concomitant]
  10. VITAMIN C CHW [Concomitant]
     Dosage: 1000 MG, UNK
  11. EXCEDRIN (MIGRAINE) [Concomitant]
  12. VITAMIN D [Concomitant]
  13. CYCLOPHOSPHAMIDE [Concomitant]
     Dosage: 30 MG, UNK
  14. VITAMIN E [Concomitant]
  15. REQUIP [Concomitant]
     Dosage: 0.25 MG, UNK
  16. CELEBREX [Concomitant]
     Dosage: 200 MG, UNK
  17. ZOLOFT [Concomitant]
     Dosage: 50 MG, UNK

REACTIONS (2)
  - FATIGUE [None]
  - SOMNOLENCE [None]
